FAERS Safety Report 8341343 (Version 3)
Quarter: 2020Q3

REPORT INFORMATION
  Report Type: Report from Study
  Country: US (occurrence: US)
  Receive Date: 20120118
  Receipt Date: 20121010
  Transmission Date: 20201105
  Serious: Yes (Other)
  Sender: FDA-Public Use
  Company Number: US-CELGENEUS-163-21880-12010399

PATIENT
  Age: 67 Year
  Sex: Male

DRUGS (5)
  1. REVLIMID [Suspect]
     Active Substance: LENALIDOMIDE
     Dosage: 10 MILLIGRAM
     Route: 048
     Dates: start: 20110809, end: 20110908
  2. REVLIMID [Suspect]
     Active Substance: LENALIDOMIDE
     Indication: THYROID CANCER
     Dosage: 15 MILLIGRAM
     Route: 048
     Dates: start: 20110517
  3. CEDIRANIB. [Suspect]
     Active Substance: CEDIRANIB
     Indication: THYROID CANCER
     Dosage: 30 MILLIGRAM
     Route: 048
     Dates: start: 20110517
  4. CEDIRANIB. [Suspect]
     Active Substance: CEDIRANIB
     Dosage: 30 MILLIGRAM
     Route: 048
     Dates: start: 20120803
  5. REVLIMID [Suspect]
     Active Substance: LENALIDOMIDE
     Dosage: 10 MILLIGRAM
     Route: 048
     Dates: start: 20120803

REACTIONS (1)
  - Squamous cell carcinoma of skin [Recovered/Resolved]

NARRATIVE: CASE EVENT DATE: 20110909
